FAERS Safety Report 24698154 (Version 2)
Quarter: 2024Q4

REPORT INFORMATION
  Report Type: Report from Study
  Country: US (occurrence: US)
  Receive Date: 20241204
  Receipt Date: 20241211
  Transmission Date: 20250115
  Serious: Yes (Other)
  Sender: ALNYLAM PHARMACEUTICALS
  Company Number: US-ALNYLAM PHARMACEUTICALS, INC.-ALN-2024-006625

PATIENT

DRUGS (1)
  1. GIVLAARI [Suspect]
     Active Substance: GIVOSIRAN SODIUM
     Indication: Porphyria acute
     Dosage: UNK
     Route: 065
     Dates: start: 20231019, end: 20231019

REACTIONS (6)
  - Encephalitis autoimmune [Unknown]
  - Seizure [Unknown]
  - Vomiting [Unknown]
  - Adverse food reaction [Unknown]
  - Brain fog [Unknown]
  - Candida infection [Unknown]
